FAERS Safety Report 21937891 (Version 1)
Quarter: 2023Q1

REPORT INFORMATION
  Report Type: Spontaneous
  Country: US (occurrence: None)
  Receive Date: 20230201
  Receipt Date: 20230201
  Transmission Date: 20230418
  Serious: Yes (Disabling, Other)
  Sender: FDA-Public Use
  Company Number: None

PATIENT
  Age: 84 Year
  Sex: Female
  Weight: 49.5 kg

DRUGS (14)
  1. MEMANTINE [Suspect]
     Active Substance: MEMANTINE
     Indication: Dementia
     Dosage: FREQUENCY : TWICE A DAY;?
     Route: 048
     Dates: start: 20220202, end: 20221208
  2. SERTRALINE [Concomitant]
     Active Substance: SERTRALINE HYDROCHLORIDE
  3. Amlodepine [Concomitant]
  4. EZETIMIBE [Concomitant]
     Active Substance: EZETIMIBE
  5. LISINOPRIL/HCTZ [Concomitant]
  6. Trimcinolon [Concomitant]
  7. Donzepil hCl [Concomitant]
  8. Alendronare [Concomitant]
  9. Doxelin HCl [Concomitant]
  10. HYDROCHLOROTHIAZIDE [Concomitant]
     Active Substance: HYDROCHLOROTHIAZIDE
  11. NAC [Concomitant]
  12. ACETYLCYSTEINE [Concomitant]
     Active Substance: ACETYLCYSTEINE
  13. QUETIAPINE [Concomitant]
     Active Substance: QUETIAPINE
  14. NAMENDA [Concomitant]
     Active Substance: MEMANTINE HYDROCHLORIDE

REACTIONS (4)
  - Abnormal behaviour [None]
  - Aggression [None]
  - Screaming [None]
  - Crying [None]

NARRATIVE: CASE EVENT DATE: 20221020
